FAERS Safety Report 5920928-0 (Version None)
Quarter: 2008Q4

REPORT INFORMATION
  Report Type: 
  Country: None (occurrence: None)
  Receive Date: 20081015
  Receipt Date: 20081015
  Transmission Date: 20090506
  Serious: Yes (Hospitalization)
  Sender: FDA-Public Use
  Company Number: None

PATIENT
  Age: 94 Year
  Sex: Male
  Weight: 74.3 kg

DRUGS (1)
  1. CEFTRIAXONE [Suspect]
     Indication: INFECTION
     Dosage: 1 GM EVERY DAY IV
     Route: 042
     Dates: start: 20081005, end: 20081006

REACTIONS (3)
  - PRURITUS [None]
  - RASH ERYTHEMATOUS [None]
  - URTICARIA [None]
